FAERS Safety Report 16232113 (Version 1)
Quarter: 2019Q2

REPORT INFORMATION
  Report Type: Spontaneous
  Country: DE (occurrence: DE)
  Receive Date: 20190424
  Receipt Date: 20190424
  Transmission Date: 20190711
  Serious: Yes (Hospitalization, Other)
  Sender: FDA-Public Use
  Company Number: DE-TAKEDA-2019TUS023874

PATIENT
  Age: 12 Year
  Sex: Female
  Weight: 46 kg

DRUGS (3)
  1. ENTYVIO [Suspect]
     Active Substance: VEDOLIZUMAB
     Indication: COLITIS ULCERATIVE
     Dosage: 300 MILLIGRAM
     Route: 042
     Dates: start: 20190410
  2. METHOTREXATE. [Concomitant]
     Active Substance: METHOTREXATE
     Indication: COLITIS ULCERATIVE
     Dosage: 15 MILLIGRAM, 1/WEEK
     Route: 058
  3. PREDNISOLONE. [Concomitant]
     Active Substance: PREDNISOLONE
     Indication: COLITIS ULCERATIVE
     Dosage: 10 MILLIGRAM, QD
     Route: 048

REACTIONS (5)
  - Renal failure [Not Recovered/Not Resolved]
  - Off label use [Unknown]
  - Weight decreased [Not Recovered/Not Resolved]
  - Dehydration [Not Recovered/Not Resolved]
  - Gastroenteritis [Not Recovered/Not Resolved]

NARRATIVE: CASE EVENT DATE: 20190410
